FAERS Safety Report 9746492 (Version 1)
Quarter: 2013Q4

REPORT INFORMATION
  Report Type: Spontaneous
  Country: US (occurrence: None)
  Receive Date: 20131205
  Receipt Date: 20131205
  Transmission Date: 20140711
  Serious: Yes (Death, Hospitalization)
  Sender: FDA-Public Use
  Company Number: 2013/209

PATIENT
  Age: 74 Year
  Sex: Male

DRUGS (1)
  1. TERBINAFINE [Suspect]
     Dosage: 250 MG, OD + ORAL
     Route: 048

REACTIONS (5)
  - Acute generalised exanthematous pustulosis [None]
  - Rash [None]
  - Staphylococcal infection [None]
  - Bacteraemia [None]
  - Sepsis [None]
